FAERS Safety Report 19454897 (Version 1)
Quarter: 2021Q2

REPORT INFORMATION
  Report Type: Spontaneous
  Country: JP (occurrence: JP)
  Receive Date: 20210623
  Receipt Date: 20210623
  Transmission Date: 20210717
  Serious: Yes (Hospitalization, Other)
  Sender: FDA-Public Use
  Company Number: JP-FERRINGPH-2021FE03997

PATIENT
  Age: 77 Year
  Sex: Female

DRUGS (1)
  1. MINIRINMELT [Suspect]
     Active Substance: DESMOPRESSIN ACETATE
     Indication: DIABETES INSIPIDUS
     Dosage: 60 UG, 2 TIMES DAILY
     Dates: start: 201912, end: 20200807

REACTIONS (5)
  - Pneumonia [Unknown]
  - Dysuria [Unknown]
  - Incorrect route of product administration [Unknown]
  - Depressed level of consciousness [Unknown]
  - Hyponatraemia [Unknown]

NARRATIVE: CASE EVENT DATE: 20210611
